FAERS Safety Report 23342506 (Version 2)
Quarter: 2024Q1

REPORT INFORMATION
  Report Type: Spontaneous
  Country: US (occurrence: US)
  Receive Date: 20231227
  Receipt Date: 20240110
  Transmission Date: 20240410
  Serious: Yes (Other)
  Sender: FDA-Public Use
  Company Number: US-BAYER-2023A181180

PATIENT
  Age: 44 Year
  Sex: Male

DRUGS (2)
  1. KOVALTRY [Suspect]
     Active Substance: ANTIHEMOPHILIC FACTOR, HUMAN RECOMBINANT
     Dosage: 2354 IU
     Route: 042
     Dates: start: 202311
  2. KOVALTRY [Suspect]
     Active Substance: ANTIHEMOPHILIC FACTOR, HUMAN RECOMBINANT
     Dosage: 2354 IU
     Route: 042
     Dates: start: 202312

REACTIONS (3)
  - Haemarthrosis [None]
  - Intra-abdominal haemorrhage [None]
  - Limb injury [None]

NARRATIVE: CASE EVENT DATE: 20231101
